FAERS Safety Report 10309304 (Version 1)
Quarter: 2014Q3

REPORT INFORMATION
  Report Type: Spontaneous
  Country: US (occurrence: None)
  Receive Date: 20140714
  Receipt Date: 20140714
  Transmission Date: 20150326
  Serious: Yes (Hospitalization)
  Sender: FDA-Public Use
  Company Number: UNT-2014-003350

PATIENT
  Age: 75 Year
  Sex: Female

DRUGS (2)
  1. TYVASO [Suspect]
     Active Substance: TREPROSTINIL
     Indication: PULMONARY ARTERIAL HYPERTENSION
     Route: 055
     Dates: start: 20120530
  2. TRACLEER /01587701/ (BOSENTAN) [Concomitant]

REACTIONS (3)
  - Pyrexia [None]
  - Infection [None]
  - Chest discomfort [None]

NARRATIVE: CASE EVENT DATE: 201406
